FAERS Safety Report 23657467 (Version 2)
Quarter: 2024Q2

REPORT INFORMATION
  Report Type: Spontaneous
  Country: ES (occurrence: ES)
  Receive Date: 20240321
  Receipt Date: 20240408
  Transmission Date: 20240715
  Serious: Yes (Hospitalization)
  Sender: FDA-Public Use
  Company Number: None

PATIENT
  Age: 40 Year
  Sex: Male

DRUGS (21)
  1. QUETIAPINE [Interacting]
     Active Substance: QUETIAPINE
     Indication: Borderline personality disorder
     Dosage: 0-1-0-1?DAILY DOSE: 100 MILLIGRAM
     Route: 048
     Dates: start: 20200805
  2. QUETIAPINE [Interacting]
     Active Substance: QUETIAPINE
     Indication: Borderline personality disorder
     Dosage: 0-0-0-2
  3. OLANZAPINE [Suspect]
     Active Substance: OLANZAPINE
     Dosage: 1-0-0-1?DAILY DOSE: 10 MILLIGRAM
  4. VENLAFAXINE [Interacting]
     Active Substance: VENLAFAXINE HYDROCHLORIDE
     Indication: Borderline personality disorder
     Dosage: 1-0-0?DAILY DOSE: 225 MILLIGRAM
     Route: 048
     Dates: start: 20220831, end: 20230424
  5. VENLAFAXINE [Interacting]
     Active Substance: VENLAFAXINE HYDROCHLORIDE
     Indication: Borderline personality disorder
     Dosage: DAILY DOSE: 300 MILLIGRAM
     Route: 048
     Dates: start: 20230424, end: 20230731
  6. VENLAFAXINE [Interacting]
     Active Substance: VENLAFAXINE HYDROCHLORIDE
     Indication: Borderline personality disorder
     Dosage: DAILY DOSE: 225 MILLIGRAM
     Route: 048
     Dates: start: 20230731, end: 20230825
  7. TRILEPTAL [Interacting]
     Active Substance: OXCARBAZEPINE
     Indication: Borderline personality disorder
     Dosage: 1-0-0-1?DAILY DOSE: 600 MILLIGRAM
     Route: 048
     Dates: start: 20221123, end: 20230816
  8. TRAZODONE [Interacting]
     Active Substance: TRAZODONE HYDROCHLORIDE
     Indication: Borderline personality disorder
     Dosage: 0-0-0-1?DAILY DOSE: 100 MILLIGRAM
     Route: 048
     Dates: start: 20230808, end: 20230825
  9. DISULFIRAM [Suspect]
     Active Substance: DISULFIRAM
     Dosage: 1-0-0-0?DAILY DOSE: 250 MILLIGRAM
  10. CLOTHIAPINE [Suspect]
     Active Substance: CLOTHIAPINE
     Dosage: 30 0-0-0-1,5
  11. GABAPENTIN [Suspect]
     Active Substance: GABAPENTIN
     Dosage: 2-1-2
  12. GABAPENTIN [Suspect]
     Active Substance: GABAPENTIN
     Dosage: 0-1-0?DAILY DOSE: 300 MILLIGRAM
  13. CLORAZEPATE DIPOTASSIUM [Suspect]
     Active Substance: CLORAZEPATE DIPOTASSIUM
     Dosage: 1-1-0-1?DAILY DOSE: 45 MILLIGRAM
  14. ASPIRIN [Suspect]
     Active Substance: ASPIRIN
     Dosage: 0-1-0?DAILY DOSE: 100 MILLIGRAM
  15. RAMIPRIL [Suspect]
     Active Substance: RAMIPRIL
     Dosage: 1-0-0-0?DAILY DOSE: 10 MILLIGRAM
  16. ROSUVASTATIN [Suspect]
     Active Substance: ROSUVASTATIN
     Dosage: 0-0-0-1?DAILY DOSE: 20 MILLIGRAM
  17. MOMETASONE [Suspect]
     Active Substance: MOMETASONE
     Dosage: IF REQUIRED
  18. BISOPROLOL [Suspect]
     Active Substance: BISOPROLOL\BISOPROLOL FUMARATE
     Dosage: 1-0-0?DAILY DOSE: 2.5 MILLIGRAM
  19. EZETIMIBE [Suspect]
     Active Substance: EZETIMIBE
     Dosage: 0-0-1?DAILY DOSE: 10 MILLIGRAM
  20. PANTOPRAZOLE [Suspect]
     Active Substance: PANTOPRAZOLE
     Dosage: 1-0-0 ?DAILY DOSE: 40 MILLIGRAM
  21. TRAMADOL [Suspect]
     Active Substance: TRAMADOL\TRAMADOL HYDROCHLORIDE
     Dosage: 1-0-1?DAILY DOSE: 200 MILLIGRAM

REACTIONS (2)
  - Inappropriate antidiuretic hormone secretion [Recovered/Resolved]
  - Hyponatraemia [Unknown]

NARRATIVE: CASE EVENT DATE: 20230818
